FAERS Safety Report 9892310 (Version 3)
Quarter: 2014Q2

REPORT INFORMATION
  Report Type: Spontaneous
  Country: US (occurrence: US)
  Receive Date: 20140212
  Receipt Date: 20140512
  Transmission Date: 20141212
  Serious: Yes (Other)
  Sender: FDA-Public Use
  Company Number: US-009507513-1402USA004802

PATIENT
  Age: 2 Year
  Sex: Female

DRUGS (12)
  1. SUSTIVA [Suspect]
     Dosage: UNK
     Route: 048
  2. CRIXIVAN [Suspect]
     Indication: HIV INFECTION
     Dosage: UNK
     Route: 048
  3. STAVUDINE [Suspect]
     Dosage: UNK
  4. NORVIR [Suspect]
     Dosage: UNK
  5. LEXIVA [Suspect]
     Dosage: UNK
  6. EMTRIVA [Suspect]
     Dosage: UNK
  7. LAMIVUDINE (+) ZIDOVUDINE [Suspect]
     Dosage: UNK
  8. PREZISTA [Suspect]
     Dosage: UNK
  9. KALETRA [Suspect]
     Dosage: UNK
  10. VIRACEPT [Suspect]
     Dosage: UNK
  11. APTIVUS [Suspect]
     Dosage: UNK
  12. VIRAMUNE [Suspect]
     Dosage: UNK

REACTIONS (1)
  - Drug resistance [Unknown]
